FAERS Safety Report 6983908-2 (Version None)
Quarter: 2010Q3

REPORT INFORMATION
  Report Type: 
  Country: None (occurrence: None)
  Receive Date: 20100914
  Receipt Date: 20090605
  Transmission Date: 20110219
  Serious: No
  Sender: FDA-Public Use
  Company Number: US-WYE-H08924909

PATIENT
  Sex: Female

DRUGS (5)
  1. PRISTIQ [Suspect]
     Route: 048
     Dates: start: 20090201
  2. CALCIUM [Concomitant]
  3. VITAMIN B [Concomitant]
  4. HYDROCODONE [Concomitant]
  5. MULTI-VITAMINS [Concomitant]

REACTIONS (1)
  - TINNITUS [None]
